FAERS Safety Report 9952707 (Version 4)
Quarter: 2016Q1

REPORT INFORMATION
  Report Type: Spontaneous
  Country: US (occurrence: US)
  Receive Date: 20140304
  Receipt Date: 20160311
  Transmission Date: 20160526
  Serious: Yes (Hospitalization)
  Sender: FDA-Public Use
  Company Number: US-BAYER-2014-031212

PATIENT
  Age: 27 Year
  Sex: Female
  Weight: 68.27 kg

DRUGS (4)
  1. MIRENA [Suspect]
     Active Substance: LEVONORGESTREL
     Indication: CONTRACEPTION
     Dosage: 20 MCG/24HR, CONT
     Route: 015
     Dates: start: 20090507, end: 20120405
  2. IBUPROFEN. [Concomitant]
     Active Substance: IBUPROFEN
     Indication: PAIN
  3. DOXYCYCLINE. [Concomitant]
     Active Substance: DOXYCYCLINE
  4. CODEINE [Concomitant]
     Active Substance: CODEINE
     Indication: PAIN

REACTIONS (7)
  - Amenorrhoea [None]
  - Injury [None]
  - Embedded device [None]
  - Pelvic pain [None]
  - Device issue [None]
  - Medical device pain [None]
  - Device difficult to use [None]

NARRATIVE: CASE EVENT DATE: 2011
